FAERS Safety Report 4601817-0 (Version None)
Quarter: 2005Q1

REPORT INFORMATION
  Report Type: 
  Country: None (occurrence: None)
  Receive Date: 20050308
  Receipt Date: 20050225
  Transmission Date: 20050727
  Serious: Yes (Other)
  Sender: FDA-Public Use
  Company Number: PHEH2005US02542

PATIENT
  Sex: Female

DRUGS (2)
  1. ZELNORM [Suspect]
     Dosage: UNK, UNK
     Route: 048
     Dates: start: 20030101
  2. OXYCONTIN [Concomitant]

REACTIONS (3)
  - ABDOMINAL PAIN [None]
  - BLADDER PROLAPSE [None]
  - INTESTINAL PROLAPSE [None]
